FAERS Safety Report 9018709 (Version 3)
Quarter: 2013Q1

REPORT INFORMATION
  Report Type: Spontaneous
  Country: GB (occurrence: GB)
  Receive Date: 20130118
  Receipt Date: 20130314
  Transmission Date: 20140127
  Serious: Yes (Hospitalization, Other)
  Sender: FDA-Public Use
  Company Number: PHFR2012GB005158

PATIENT
  Age: 45 Year
  Sex: Female

DRUGS (5)
  1. CLOZARIL [Suspect]
     Indication: SCHIZOPHRENIA
     Dosage: 250 MG, (100MG MORNING + 150MG NIGHT)
     Route: 048
     Dates: start: 20120828
  2. DOXAZOSIN [Concomitant]
     Indication: BLOOD PRESSURE
     Dosage: 4 MG,
     Route: 048
  3. FUROSEMIDE [Concomitant]
     Indication: OEDEMA PERIPHERAL
     Dosage: 40 MG,
     Route: 048
  4. PARACETAMOL [Concomitant]
     Indication: PAIN
     Dosage: 1 G, QD
     Route: 048
  5. HYOSCINE [Concomitant]
     Indication: DROOLING
     Dosage: 300 UG, TID
     Route: 048

REACTIONS (11)
  - Cholecystitis [Recovered/Resolved]
  - Abdominal pain [Unknown]
  - Pyrexia [Unknown]
  - Malaise [Unknown]
  - Diarrhoea [Recovered/Resolved]
  - Platelet count increased [Recovered/Resolved]
  - Mental impairment [Unknown]
  - Psychiatric symptom [Unknown]
  - Urinary tract infection [Unknown]
  - Sepsis [Unknown]
  - Schizoaffective disorder [Not Recovered/Not Resolved]
